FAERS Safety Report 16681131 (Version 1)
Quarter: 2019Q3

REPORT INFORMATION
  Report Type: Spontaneous
  Country: MX (occurrence: MX)
  Receive Date: 20190808
  Receipt Date: 20190808
  Transmission Date: 20191004
  Serious: Yes (Other)
  Sender: FDA-Public Use
  Company Number: MX-ROCHE-2372344

PATIENT
  Age: 37 Year
  Sex: Male

DRUGS (2)
  1. OMALIZUMAB. [Suspect]
     Active Substance: OMALIZUMAB
     Indication: HYPER IGE SYNDROME
     Dosage: 300 MG, BIW
     Route: 065
     Dates: start: 200901
  2. OMALIZUMAB. [Suspect]
     Active Substance: OMALIZUMAB
     Dosage: 350 MG, BIW
     Route: 065

REACTIONS (8)
  - Erythema [Unknown]
  - Dermatitis exfoliative generalised [Unknown]
  - Off label use [Unknown]
  - Eczema [Unknown]
  - Pruritus [Unknown]
  - Skin lesion [Unknown]
  - Condition aggravated [Unknown]
  - Product use in unapproved indication [Unknown]

NARRATIVE: CASE EVENT DATE: 201305
